FAERS Safety Report 4765477-0 (Version None)
Quarter: 2005Q3

REPORT INFORMATION
  Report Type: 
  Country: None (occurrence: None)
  Receive Date: 20050908
  Receipt Date: 20050826
  Transmission Date: 20060218
  Serious: Yes (Hospitalization)
  Sender: FDA-Public Use
  Company Number: 2005121003

PATIENT
  Age: 68 Year
  Sex: Male
  Weight: 106 kg

DRUGS (15)
  1. ALDACTONE [Suspect]
     Indication: HYPERTENSION
     Dates: end: 20050624
  2. ZYVOX [Suspect]
     Indication: STAPHYLOCOCCAL INFECTION
     Dosage: 1200 MG (2 IN 1 D), ORAL
     Route: 048
     Dates: start: 20050624
  3. FUROSEMIDE [Suspect]
     Indication: RENAL FAILURE ACUTE
     Dosage: ORAL
     Route: 048
     Dates: start: 20050624
  4. LEVOTHYROXINE SODIUM [Suspect]
     Indication: HYPOTHYROIDISM
     Dosage: ORAL
     Route: 048
     Dates: start: 19970101
  5. LOVENOX [Suspect]
     Indication: ATRIAL FIBRILLATION
     Dosage: 1.2 ML (2 IN 1 D), SUBCUTANEOUS
     Route: 058
     Dates: start: 20041101, end: 20050627
  6. PREVISCAN (FLUINDIONE) [Suspect]
     Indication: ATRIAL FIBRILLATION
     Dosage: 20 MG (20 MG, 1 IN 1 D), ORAL
     Route: 048
     Dates: start: 20050718
  7. FOLIC ACID [Suspect]
     Indication: ANAEMIA
     Dosage: 5 MG (5 MG, 1 IN 1 D), ORAL
     Route: 048
     Dates: start: 20050627
  8. FERROUS SULFATE TAB [Suspect]
     Indication: ANAEMIA
     Dosage: 2 TABLETS A DAY, ORAL
     Route: 048
     Dates: start: 20050627, end: 20050701
  9. SOTALOL HCL [Suspect]
     Indication: ILL-DEFINED DISORDER
     Dosage: 80 MG (80 MG)
     Dates: end: 20050701
  10. TAREG (VALSARTAN) [Suspect]
     Indication: HYPERTENSION
     Dates: end: 20050624
  11. SMECTA ^DAE WOUND^ (SMECTITE) [Suspect]
     Indication: DIARRHOEA
     Dates: start: 20050701
  12. BROMAZEPAM (BROMAZEPAM) [Suspect]
     Indication: ILL-DEFINED DISORDER
     Dates: start: 20050701
  13. POTASSIUM CHLORIDE [Suspect]
     Indication: ILL-DEFINED DISORDER
     Dosage: 3 GRAM (3 GRAM)
     Dates: start: 20050627
  14. FERROUS FUMARATE [Suspect]
     Indication: ILL-DEFINED DISORDER
     Dates: start: 20050701
  15. HEPARIN [Suspect]
     Indication: ILL-DEFINED DISORDER
     Dates: start: 20050627, end: 20050701

REACTIONS (8)
  - APLASTIC ANAEMIA [None]
  - ARTHRODESIS [None]
  - ATRIAL FIBRILLATION [None]
  - DEHYDRATION [None]
  - HYPERTENSION [None]
  - POSTOPERATIVE INFECTION [None]
  - RENAL FAILURE ACUTE [None]
  - STAPHYLOCOCCAL INFECTION [None]
